FAERS Safety Report 15419225 (Version 1)
Quarter: 2018Q3

REPORT INFORMATION
  Report Type: Spontaneous
  Country: CA (occurrence: CA)
  Receive Date: 20180924
  Receipt Date: 20180924
  Transmission Date: 20181010
  Serious: Yes (Other)
  Sender: FDA-Public Use
  Company Number: CA-PFIZER INC-2018381279

PATIENT
  Age: 58 Year
  Sex: Female

DRUGS (8)
  1. TACROLIMUS. [Suspect]
     Active Substance: TACROLIMUS
     Dosage: 2 MG, 2X/DAY
     Route: 065
  2. INSULIN [Concomitant]
     Active Substance: INSULIN NOS
     Dosage: UNK
     Route: 065
  3. RAPAMUNE [Suspect]
     Active Substance: SIROLIMUS
     Dosage: 4.0 ML, 1X/DAY
     Route: 048
  4. CALCIUM [Concomitant]
     Active Substance: CALCIUM
     Dosage: 1000 MG, 1X/DAY
     Route: 065
  5. LIPITOR [Concomitant]
     Active Substance: ATORVASTATIN CALCIUM
     Dosage: 10 MG, 1X/DAY
     Route: 065
  6. LORAZEPAM. [Concomitant]
     Active Substance: LORAZEPAM
     Dosage: 1 MG, 3X/DAY
     Route: 065
  7. DIDROCAL [Concomitant]
     Active Substance: CALCIUM CARBONATE\ETIDRONATE DISODIUM
     Dosage: ETIDRONATE DISODIUM 400MG AND 1250MG CALCIUM CARBONATE 500 MG DOSAGE FORM  KIT
     Route: 065
  8. METFORMIN [Concomitant]
     Active Substance: METFORMIN HYDROCHLORIDE
     Dosage: 250 MG, 2X/DAY
     Route: 065

REACTIONS (8)
  - Neuropathy peripheral [Unknown]
  - Parkinsonism [Unknown]
  - Reduced facial expression [Unknown]
  - Cerebellar ataxia [Unknown]
  - Extrapyramidal disorder [Unknown]
  - Condition aggravated [Unknown]
  - Transplant rejection [Unknown]
  - Muscle rigidity [Unknown]
